FAERS Safety Report 12957166 (Version 2)
Quarter: 2016Q4

REPORT INFORMATION
  Report Type: Spontaneous
  Country: US (occurrence: US)
  Receive Date: 20161118
  Receipt Date: 20161121
  Transmission Date: 20170207
  Serious: Yes (Hospitalization)
  Sender: FDA-Public Use
  Company Number: US-JNJFOC-20161112987

PATIENT
  Sex: Male

DRUGS (1)
  1. XARELTO [Suspect]
     Active Substance: RIVAROXABAN
     Indication: ATRIAL FLUTTER
     Route: 048

REACTIONS (5)
  - Product use issue [Unknown]
  - Post procedural haematuria [Unknown]
  - Off label use [Unknown]
  - Treatment noncompliance [Unknown]
  - Hospitalisation [Unknown]

NARRATIVE: CASE EVENT DATE: 201611
